FAERS Safety Report 14382396 (Version 4)
Quarter: 2018Q3

REPORT INFORMATION
  Report Type: Spontaneous
  Country: IT (occurrence: IT)
  Receive Date: 20180112
  Receipt Date: 20180921
  Transmission Date: 20181010
  Serious: Yes (Other)
  Sender: FDA-Public Use
  Company Number: IT-BAUSCH-BL-2018-001048

PATIENT
  Age: 70 Year
  Sex: Male

DRUGS (12)
  1. IRINOTECAN HYDROCHLORIDE. [Suspect]
     Active Substance: IRINOTECAN HYDROCHLORIDE
     Indication: ADENOCARCINOMA OF COLON
     Route: 065
     Dates: start: 201410, end: 201501
  2. LEUCOVORIN. [Suspect]
     Active Substance: LEUCOVORIN
     Indication: ADENOCARCINOMA OF COLON
     Route: 065
     Dates: start: 201410, end: 201501
  3. OXALIPLATIN. [Suspect]
     Active Substance: OXALIPLATIN
     Indication: ADENOCARCINOMA OF COLON
     Dosage: EVERY CYCLE
     Route: 065
     Dates: start: 201204
  4. PANITUMUMAB [Suspect]
     Active Substance: PANITUMUMAB
     Indication: ADENOCARCINOMA OF COLON
     Dosage: EVERY OTHER WEEK
     Route: 065
     Dates: start: 201410, end: 201506
  5. CAPECITABINE. [Suspect]
     Active Substance: CAPECITABINE
     Indication: ADENOCARCINOMA OF COLON
     Route: 065
     Dates: start: 201204, end: 201312
  6. CALCIUM FOLINATE [Suspect]
     Active Substance: LEUCOVORIN CALCIUM
     Indication: ADENOCARCINOMA OF COLON
     Route: 065
     Dates: start: 201410, end: 201501
  7. FLUOROURACIL. [Suspect]
     Active Substance: FLUOROURACIL
     Indication: ADENOCARCINOMA OF COLON
     Dosage: EVERY OTHER WEEK
     Route: 040
     Dates: start: 201410, end: 201501
  8. BEVACIZUMAB. [Suspect]
     Active Substance: BEVACIZUMAB
     Indication: ADENOCARCINOMA OF COLON
     Dosage: EVERY CYCLE
     Route: 065
     Dates: start: 201204, end: 201204
  9. BEVACIZUMAB. [Suspect]
     Active Substance: BEVACIZUMAB
     Dosage: EVERY CYCLE
     Route: 065
     Dates: start: 201312, end: 201312
  10. FLUOROURACIL. [Suspect]
     Active Substance: FLUOROURACIL
     Dosage: EVERY OTHER WEEK
     Route: 041
     Dates: start: 201410, end: 201501
  11. PANITUMUMAB [Suspect]
     Active Substance: PANITUMUMAB
     Dosage: 60 PERCENT OF THE ORIGINAL DOSE, EVERY THREE WEEKS
     Route: 065
     Dates: start: 201506
  12. OXALIPLATIN. [Suspect]
     Active Substance: OXALIPLATIN
     Dosage: EVERY CYCLE
     Route: 065

REACTIONS (8)
  - Skin toxicity [Unknown]
  - Drug effective for unapproved indication [Unknown]
  - Neutropenia [Unknown]
  - Diarrhoea [Unknown]
  - Palmar-plantar erythrodysaesthesia syndrome [Unknown]
  - Neuropathy peripheral [Unknown]
  - Asthenia [Unknown]
  - Off label use [Unknown]

NARRATIVE: CASE EVENT DATE: 201410
